FAERS Safety Report 4323234-3 (Version None)
Quarter: 2004Q1

REPORT INFORMATION
  Report Type: 
  Country: None (occurrence: None)
  Receive Date: 20040324
  Receipt Date: 20040324
  Transmission Date: 20041129
  Serious: Yes (Hospitalization)
  Sender: FDA-Public Use
  Company Number: None

PATIENT
  Age: 25 Year
  Sex: Female
  Weight: 49.8957 kg

DRUGS (1)
  1. LEXAPRO [Suspect]
     Indication: MOOD SWINGS
     Dosage: 10 MG 1 TIME ORAL
     Route: 048
     Dates: start: 20040226, end: 20040226

REACTIONS (5)
  - DIFFICULTY IN WALKING [None]
  - FEELING ABNORMAL [None]
  - MANIA [None]
  - MOVEMENT DISORDER [None]
  - SPEECH DISORDER [None]
